FAERS Safety Report 23250726 (Version 1)
Quarter: 2023Q4

REPORT INFORMATION
  Report Type: Spontaneous
  Country: US (occurrence: US)
  Receive Date: 20231201
  Receipt Date: 20231201
  Transmission Date: 20240110
  Serious: Yes (Death)
  Sender: FDA-Public Use
  Company Number: US-CTI BIOPHARMA-2023US04277

PATIENT

DRUGS (4)
  1. VONJO [Suspect]
     Active Substance: PACRITINIB
     Indication: Myelodysplastic syndrome
     Dosage: 100 MG, BID
     Route: 048
     Dates: start: 202307
  2. SENOKOT [Concomitant]
     Active Substance: SENNOSIDES
     Indication: Product used for unknown indication
     Route: 065
  3. PSYLLIUM HUSK [Concomitant]
     Active Substance: PSYLLIUM HUSK
     Indication: Product used for unknown indication
     Route: 065
  4. DOCUSATE SODIUM [Concomitant]
     Active Substance: DOCUSATE SODIUM
     Indication: Product used for unknown indication
     Route: 065

REACTIONS (1)
  - Death [Fatal]
